FAERS Safety Report 4801502-6 (Version None)
Quarter: 2005Q4

REPORT INFORMATION
  Report Type: 
  Country: None (occurrence: None)
  Receive Date: 20051011
  Receipt Date: 20050926
  Transmission Date: 20060501
  Serious: Yes (Other)
  Sender: FDA-Public Use
  Company Number: 2005134215

PATIENT
  Sex: Male
  Weight: 86.1834 kg

DRUGS (1)
  1. VIAGRA [Suspect]
     Indication: ERECTILE DYSFUNCTION
     Dosage: ORAL
     Route: 048

REACTIONS (6)
  - BRONCHITIS [None]
  - COUGH [None]
  - DIZZINESS [None]
  - EYE HAEMORRHAGE [None]
  - EYE INJURY [None]
  - PHOTOPSIA [None]
